FAERS Safety Report 14179331 (Version 1)
Quarter: 2017Q4

REPORT INFORMATION
  Report Type: Spontaneous
  Country: US (occurrence: US)
  Receive Date: 20171110
  Receipt Date: 20171110
  Transmission Date: 20180321
  Serious: No
  Sender: FDA-Public Use
  Company Number: US-RISING PHARMACEUTICALS, INC.-2017RIS00229

PATIENT
  Sex: Female
  Weight: 44.44 kg

DRUGS (3)
  1. CROMOLYN SODIUM. [Suspect]
     Active Substance: CROMOLYN SODIUM
     Indication: MAST CELL ACTIVATION SYNDROME
     Dosage: UNK
     Dates: start: 2016
  2. EPIPEN [Concomitant]
     Active Substance: EPINEPHRINE
     Dosage: UNK, AS NEEDED
  3. CROMOLYN SODIUM. [Suspect]
     Active Substance: CROMOLYN SODIUM
     Dosage: 1 DOSAGE UNITS, 4X/DAY
     Route: 048
     Dates: start: 201708

REACTIONS (8)
  - Abdominal pain upper [Not Recovered/Not Resolved]
  - Feeling abnormal [Unknown]
  - Drug intolerance [Unknown]
  - Headache [Not Recovered/Not Resolved]
  - Dyspepsia [Not Recovered/Not Resolved]
  - Incorrect dosage administered [Unknown]
  - Foreign body reaction [Not Recovered/Not Resolved]
  - Fatigue [Unknown]
